FAERS Safety Report 11738127 (Version 1)
Quarter: 2015Q4

REPORT INFORMATION
  Report Type: Spontaneous
  Country: GB (occurrence: GB)
  Receive Date: 20151113
  Receipt Date: 20151113
  Transmission Date: 20160304
  Serious: Yes (Hospitalization, Other)
  Sender: FDA-Public Use
  Company Number: GB-PFIZER INC-2015381524

PATIENT
  Age: 54 Year
  Sex: Female
  Weight: 59 kg

DRUGS (11)
  1. VITAMIN B [Concomitant]
     Active Substance: VITAMIN B
     Dosage: 1 DF, 1X/DAY
     Dates: start: 20151026
  2. GABAPENTIN. [Suspect]
     Active Substance: GABAPENTIN
     Dates: start: 20151026
  3. HYOSCINE BUTYLBROMIDE [Concomitant]
     Active Substance: BUTYLSCOPOLAMINE
     Dosage: 2 DF, 4X/DAY
     Dates: start: 20150813, end: 20150827
  4. MESALAZINE [Concomitant]
     Active Substance: MESALAMINE
     Dosage: TWO SACHETS TWICE DAILY
     Dates: start: 20151009, end: 20151010
  5. ORAL REHYDRATION SALTS /01239601/ [Concomitant]
     Dosage: 1 DF, UNK
     Dates: start: 20150911, end: 20150912
  6. CODEINE PHOSPHATE [Concomitant]
     Active Substance: CODEINE PHOSPHATE
     Dosage: 1 DF, 4X/DAY
     Dates: start: 20150828, end: 20150911
  7. NUTRIZYM /00014701/ [Concomitant]
     Dosage: 3 DF 3X/DAY WITH EACH MAIN MEAL
     Dates: start: 20151026
  8. THIAMINE. [Concomitant]
     Active Substance: THIAMINE
     Dosage: 1 DF, 3X/DAY
     Dates: start: 20151026
  9. TRAMADOL. [Concomitant]
     Active Substance: TRAMADOL
     Dosage: ONE OR TWO UP TO FOUR TIMES DAILY
     Dates: start: 20150701, end: 20150924
  10. ZOMORPH [Concomitant]
     Active Substance: MORPHINE SULFATE
     Dosage: 2 DF, 1 EVERY 12 HOURS
     Dates: start: 20150701, end: 20151026
  11. CREON [Concomitant]
     Active Substance: PANCRELIPASE AMYLASE\PANCRELIPASE LIPASE\PANCRELIPASE PROTEASE
     Dosage: 1 DF, 4X/DAY
     Dates: start: 20151026

REACTIONS (2)
  - Pancreatic insufficiency [Not Recovered/Not Resolved]
  - Diarrhoea [Recovering/Resolving]

NARRATIVE: CASE EVENT DATE: 20151026
